FAERS Safety Report 10213507 (Version 1)
Quarter: 2014Q2

REPORT INFORMATION
  Report Type: Spontaneous
  Country: US (occurrence: None)
  Receive Date: 20140530
  Receipt Date: 20140530
  Transmission Date: 20141212
  Serious: Yes (Life-Threatening)
  Sender: FDA-Public Use
  Company Number: None

PATIENT
  Age: 64 Year
  Sex: Male
  Weight: 133.9 kg

DRUGS (2)
  1. FENTANYL [Suspect]
     Route: 042
     Dates: start: 20130423, end: 20130423
  2. MIDAZOLAM [Suspect]
     Route: 042
     Dates: start: 20130423, end: 20130423

REACTIONS (3)
  - Respiratory arrest [None]
  - Pulse absent [None]
  - Cardiac arrest [None]
